FAERS Safety Report 24678087 (Version 4)
Quarter: 2025Q1

REPORT INFORMATION
  Report Type: Spontaneous
  Country: GB (occurrence: GB)
  Receive Date: 20241129
  Receipt Date: 20250313
  Transmission Date: 20250409
  Serious: Yes (Other)
  Sender: ORGANON
  Company Number: GB-ORGANON-O2411GBR001680

PATIENT
  Age: 67 Year
  Sex: Female

DRUGS (3)
  1. SINEMET [Suspect]
     Active Substance: CARBIDOPA\LEVODOPA
     Indication: Parkinson^s disease
     Dosage: 2 TABLETS EVERY 2 HOURS FROM 6 IN THE MORNING TILL 6 AT NIGHT.
     Route: 048
     Dates: start: 20241116
  2. SINEMET [Suspect]
     Active Substance: CARBIDOPA\LEVODOPA
     Indication: Parkinson^s disease
     Route: 048
  3. BENSERAZIDE HYDROCHLORIDE\LEVODOPA [Concomitant]
     Active Substance: BENSERAZIDE HYDROCHLORIDE\LEVODOPA

REACTIONS (5)
  - Akinesia [Unknown]
  - Drug ineffective [Unknown]
  - Overdose [Unknown]
  - Product colour issue [Unknown]
  - Product coating issue [Unknown]

NARRATIVE: CASE EVENT DATE: 20241116
